FAERS Safety Report 9153596 (Version 2)
Quarter: 2013Q2

REPORT INFORMATION
  Report Type: Spontaneous
  Country: US (occurrence: US)
  Receive Date: 20130311
  Receipt Date: 20130410
  Transmission Date: 20140414
  Serious: Yes (Other)
  Sender: FDA-Public Use
  Company Number: PHEH2013US005413

PATIENT
  Sex: Female

DRUGS (16)
  1. DIOVAN [Suspect]
  2. VALSARTAN [Suspect]
     Dosage: UNK UKN, UNK
     Dates: start: 20130213
  3. DILTIAZEM ER [Concomitant]
     Dosage: UNK UKN, UNK
  4. NITRO-TIME [Concomitant]
     Dosage: UNK UKN, UNK
  5. RANITIDINE [Concomitant]
     Dosage: UNK UKN, UNK
  6. LORATADINE [Concomitant]
     Dosage: UNK UKN, UNK
  7. VITAMAN [Concomitant]
     Dosage: UNK UKN, UNK
  8. CONVALLARIA MAJALIS\CRATAEGUS LAEVIGATA LEAF\PROXYPHYLLINE [Concomitant]
     Dosage: UNK UKN, UNK
  9. OSTEO BI-FLEX [Concomitant]
     Dosage: UNK UKN, UNK
  10. CALCIUM +VIT D [Concomitant]
     Dosage: UNK UKN, UNK
  11. VITAMIIN C [Concomitant]
     Dosage: UNK UKN, UNK
  12. NIACIN [Concomitant]
     Dosage: UNK UKN, UNK
  13. VITAMIN E [Concomitant]
     Dosage: UNK UKN, UNK
  14. VITAMIN B COMPLEX [Concomitant]
     Dosage: UNK UKN, UNK
  15. MSM [Concomitant]
     Dosage: UNK UKN, UNK
  16. CHROMIUM PICOLINATE [Concomitant]
     Dosage: UNK UKN, UNK

REACTIONS (3)
  - Angina pectoris [Unknown]
  - Blood pressure inadequately controlled [Unknown]
  - Headache [Unknown]
